FAERS Safety Report 11198941 (Version 5)
Quarter: 2016Q1

REPORT INFORMATION
  Report Type: Spontaneous
  Country: AU (occurrence: AU)
  Receive Date: 20150618
  Receipt Date: 20160308
  Transmission Date: 20160525
  Serious: Yes (Hospitalization)
  Sender: FDA-Public Use
  Company Number: AU-SA-2015SA085176

PATIENT
  Age: 56 Year
  Sex: Male

DRUGS (5)
  1. FABRAZYME [Suspect]
     Active Substance: AGALSIDASE BETA
     Indication: FABRY^S DISEASE
     Route: 041
     Dates: start: 20090210
  2. FABRAZYME [Suspect]
     Active Substance: AGALSIDASE BETA
     Indication: FABRY^S DISEASE
     Route: 041
     Dates: start: 20090210
  3. FABRAZYME [Suspect]
     Active Substance: AGALSIDASE BETA
     Indication: FABRY^S DISEASE
     Route: 041
     Dates: start: 20090210
  4. SOTALOL. [Concomitant]
     Active Substance: SOTALOL
  5. PANADOL [Concomitant]
     Active Substance: ACETAMINOPHEN

REACTIONS (9)
  - Dysarthria [Unknown]
  - Transient ischaemic attack [Unknown]
  - Cerebrovascular accident [Unknown]
  - Arrhythmia [Recovered/Resolved with Sequelae]
  - Malaise [Unknown]
  - Memory impairment [Unknown]
  - Localised infection [Recovering/Resolving]
  - Blood creatinine increased [Unknown]
  - Nasopharyngitis [Recovering/Resolving]

NARRATIVE: CASE EVENT DATE: 20150603
